FAERS Safety Report 13367218 (Version 1)
Quarter: 2017Q1

REPORT INFORMATION
  Report Type: Spontaneous
  Country: US (occurrence: US)
  Receive Date: 20170324
  Receipt Date: 20170324
  Transmission Date: 20170429
  Serious: No
  Sender: FDA-Public Use
  Company Number: US-ENDO PHARMACEUTICALS INC-2016-001935

PATIENT
  Sex: Female
  Weight: 63.56 kg

DRUGS (3)
  1. TRAZODONE HYDROCHLORIDE TABLETS 50MG [Suspect]
     Active Substance: TRAZODONE HYDROCHLORIDE
     Indication: INSOMNIA
     Route: 048
     Dates: start: 201602, end: 201602
  2. ARMOUR THYROID [Concomitant]
     Active Substance: THYROID, PORCINE
     Indication: THYROID DISORDER
  3. TRAZODONE HYDROCHLORIDE TABLETS 50MG [Suspect]
     Active Substance: TRAZODONE HYDROCHLORIDE
     Dosage: 1/2 TABLET AT BEDTIME
     Route: 048
     Dates: start: 201602

REACTIONS (4)
  - Drug ineffective for unapproved indication [Not Recovered/Not Resolved]
  - Tremor [Recovered/Resolved]
  - Off label use [Unknown]
  - Intentional product use issue [Recovered/Resolved]

NARRATIVE: CASE EVENT DATE: 201602
